FAERS Safety Report 15304529 (Version 1)
Quarter: 2018Q3

REPORT INFORMATION
  Report Type: Spontaneous
  Country: US (occurrence: US)
  Receive Date: 20180821
  Receipt Date: 20180821
  Transmission Date: 20181010
  Serious: No
  Sender: FDA-Public Use
  Company Number: US-AMGEN INC.-USASP2018102310

PATIENT
  Age: 77 Year
  Sex: Female

DRUGS (3)
  1. COMPAZINE [Concomitant]
     Active Substance: PROCHLORPERAZINE MALEATE
     Indication: MIGRAINE
     Dosage: UNK
  2. AIMOVIG [Suspect]
     Active Substance: ERENUMAB-AOOE
     Indication: MIGRAINE PROPHYLAXIS
     Dosage: 70 MG, UNK
     Route: 065
     Dates: start: 201807
  3. DICLOFENAC [Concomitant]
     Active Substance: DICLOFENAC
     Indication: MIGRAINE
     Dosage: UNK

REACTIONS (2)
  - Muscular weakness [Recovered/Resolved]
  - Constipation [Not Recovered/Not Resolved]

NARRATIVE: CASE EVENT DATE: 201807
